FAERS Safety Report 18270670 (Version 2)
Quarter: 2020Q4

REPORT INFORMATION
  Report Type: Spontaneous
  Country: US (occurrence: US)
  Receive Date: 20200915
  Receipt Date: 20201001
  Transmission Date: 20210113
  Serious: Yes (Other)
  Sender: FDA-Public Use
  Company Number: US-TEVA-2020-US-1827351

PATIENT
  Age: 37 Year
  Sex: Male

DRUGS (1)
  1. BUPRENORPHINE. [Suspect]
     Active Substance: BUPRENORPHINE
     Indication: DRUG ABUSE
     Dosage: SUBCUTANEOUS INJECTION OF CRUSHED SUBLINGUAL BUPRENORPHINE TABLETS
     Route: 058

REACTIONS (2)
  - Skin mass [Unknown]
  - Drug abuse [Unknown]
